FAERS Safety Report 21586897 (Version 1)
Quarter: 2022Q4

REPORT INFORMATION
  Report Type: Spontaneous
  Country: DK (occurrence: DK)
  Receive Date: 20221113
  Receipt Date: 20221113
  Transmission Date: 20230112
  Serious: Yes (Hospitalization)
  Sender: FDA-Public Use
  Company Number: None

PATIENT
  Age: 48 Year
  Sex: Female

DRUGS (6)
  1. TYSABRI [Suspect]
     Active Substance: NATALIZUMAB
     Indication: Multiple sclerosis
     Dosage: STRENGTH: 300 MG
     Route: 050
     Dates: start: 202006
  2. MAGNESIA DAK [Concomitant]
     Indication: Constipation
     Route: 050
     Dates: start: 20210518
  3. MIRENA [Concomitant]
     Active Substance: LEVONORGESTREL
     Indication: Contraception
     Route: 050
     Dates: start: 20140804
  4. BACLOFEN [Concomitant]
     Active Substance: BACLOFEN
     Indication: Muscle spasticity
     Route: 050
     Dates: start: 20200430
  5. SALBUTAMOL ORIFARM [Concomitant]
     Indication: Asthma
     Route: 050
     Dates: start: 20150904
  6. MORPHINE SULFATE [Concomitant]
     Active Substance: MORPHINE SULFATE
     Indication: Pain
     Route: 050
     Dates: start: 20200406

REACTIONS (1)
  - Bladder cancer [Unknown]

NARRATIVE: CASE EVENT DATE: 20220101
